FAERS Safety Report 18451412 (Version 2)
Quarter: 2022Q2

REPORT INFORMATION
  Report Type: Spontaneous
  Country: US (occurrence: US)
  Receive Date: 20201101
  Receipt Date: 20220616
  Transmission Date: 20220721
  Serious: Yes (Hospitalization, Other)
  Sender: FDA-Public Use
  Company Number: US-NAPPMUNDI-USA-2020-0154037

PATIENT
  Sex: Male

DRUGS (1)
  1. OXYCONTIN [Suspect]
     Active Substance: OXYCODONE HYDROCHLORIDE
     Indication: Pain
     Dosage: UNKNOWN
     Route: 048

REACTIONS (7)
  - Detoxification [Unknown]
  - Drug dependence [Unknown]
  - Drug abuse [Unknown]
  - Injury [Unknown]
  - Illness [Unknown]
  - Depression [Unknown]
  - Memory impairment [Unknown]
